FAERS Safety Report 7568465-4 (Version None)
Quarter: 2011Q2

REPORT INFORMATION
  Report Type: 
  Country: None (occurrence: None)
  Receive Date: 20110623
  Receipt Date: 20110610
  Transmission Date: 20111010
  Serious: Yes (Hospitalization)
  Sender: FDA-Public Use
  Company Number: MX-ELI_LILLY_AND_COMPANY-MX201105006479

PATIENT
  Age: 14 Year
  Sex: Male

DRUGS (3)
  1. STRATTERA [Suspect]
     Indication: ATTENTION DEFICIT/HYPERACTIVITY DISORDER
     Dosage: 10 MG, QD
     Dates: start: 20110330
  2. STRATTERA [Suspect]
     Dosage: 20 MG, QD
  3. STRATTERA [Suspect]
     Dosage: 40 MG, QD

REACTIONS (7)
  - BICYTOPENIA [None]
  - BLOOD UREA INCREASED [None]
  - ABDOMINAL PAIN LOWER [None]
  - BLOOD ALKALINE PHOSPHATASE INCREASED [None]
  - URTICARIA [None]
  - PYREXIA [None]
  - ASTHENIA [None]
